FAERS Safety Report 19131970 (Version 1)
Quarter: 2021Q2

REPORT INFORMATION
  Report Type: Spontaneous
  Country: CN (occurrence: CN)
  Receive Date: 20210413
  Receipt Date: 20210413
  Transmission Date: 20210717
  Serious: Yes (Hospitalization, Other)
  Sender: FDA-Public Use
  Company Number: CN-GLAXOSMITHKLINE-CNCH2021APC018320

PATIENT
  Age: 58 Year
  Sex: Female
  Weight: 50 kg

DRUGS (2)
  1. IBUPROFEN. [Suspect]
     Active Substance: IBUPROFEN
     Indication: PYREXIA
     Dosage: 0.30 G, QD
     Route: 048
     Dates: start: 20210101, end: 20210101
  2. COMPOUND AMILORIDE HYDROCHLORIDE TABLETS [Concomitant]
     Indication: HYPERTENSION
     Dosage: UNK
     Dates: start: 2020

REACTIONS (2)
  - Liver injury [Recovering/Resolving]
  - Drug-induced liver injury [Recovering/Resolving]

NARRATIVE: CASE EVENT DATE: 20210110
